FAERS Safety Report 15357197 (Version 1)
Quarter: 2018Q3

REPORT INFORMATION
  Report Type: Spontaneous
  Country: JP (occurrence: JP)
  Receive Date: 20180906
  Receipt Date: 20180906
  Transmission Date: 20181010
  Serious: Yes (Hospitalization, Other)
  Sender: FDA-Public Use
  Company Number: PHJP2016JP020720

PATIENT
  Age: 38 Year
  Sex: Male
  Weight: 76 kg

DRUGS (6)
  1. GILENYA [Suspect]
     Active Substance: FINGOLIMOD HYDROCHLORIDE
     Indication: MULTIPLE SCLEROSIS RELAPSE PROPHYLAXIS
     Dosage: 0.5 MG, QD
     Route: 048
     Dates: start: 20130402, end: 20151221
  2. REBAMIPIDE [Concomitant]
     Active Substance: REBAMIPIDE
     Indication: PRODUCT USED FOR UNKNOWN INDICATION
     Dosage: 100 MG, TID
     Route: 048
  3. REBAMIPIDE [Concomitant]
     Active Substance: REBAMIPIDE
     Indication: GASTROOESOPHAGEAL REFLUX DISEASE
  4. CALFINA [Concomitant]
     Active Substance: ALFACALCIDOL
     Dosage: 1 MG, QID
     Route: 048
  5. CALFINA [Concomitant]
     Active Substance: ALFACALCIDOL
     Indication: OSTEOPOROSIS PROPHYLAXIS
     Dosage: 1 UG, QD
     Route: 048
  6. GILENYA [Suspect]
     Active Substance: FINGOLIMOD HYDROCHLORIDE
     Dosage: 0.5 MG, QOD
     Route: 048
     Dates: start: 20160407

REACTIONS (19)
  - C-reactive protein increased [Unknown]
  - Alanine aminotransferase increased [Recovering/Resolving]
  - Aspartate aminotransferase increased [Recovering/Resolving]
  - Respiratory syncytial virus infection [Recovered/Resolved]
  - Platelet count increased [Unknown]
  - Lymphocyte count decreased [Recovering/Resolving]
  - Gamma-glutamyltransferase increased [Recovering/Resolving]
  - Upper respiratory tract inflammation [Recovered/Resolved]
  - Erythema [Recovering/Resolving]
  - Neutrophil percentage increased [Unknown]
  - Haematocrit decreased [Unknown]
  - Haemoglobin decreased [Unknown]
  - Serous retinal detachment [Recovering/Resolving]
  - Subretinal fluid [Recovering/Resolving]
  - White blood cell count increased [Recovering/Resolving]
  - Prescribed underdose [Unknown]
  - Pyrexia [Recovered/Resolved]
  - Herpes zoster [Recovered/Resolved]
  - Papule [Recovering/Resolving]

NARRATIVE: CASE EVENT DATE: 20151220
